FAERS Safety Report 20993831 (Version 1)
Quarter: 2022Q2

REPORT INFORMATION
  Report Type: Spontaneous
  Country: US (occurrence: None)
  Receive Date: 20220621
  Receipt Date: 20220621
  Transmission Date: 20220721
  Serious: No
  Sender: FDA-Public Use
  Company Number: None

PATIENT

DRUGS (1)
  1. PHENYLEPHRINE [Suspect]
     Active Substance: PHENYLEPHRINE HYDROCHLORIDE
     Dosage: OTHER STRENGTH : 1000/10 UG/ML;?

REACTIONS (2)
  - Product label confusion [None]
  - Product label confusion [None]
